FAERS Safety Report 15402394 (Version 1)
Quarter: 2018Q3

REPORT INFORMATION
  Report Type: Spontaneous
  Country: JP (occurrence: JP)
  Receive Date: 20180919
  Receipt Date: 20180919
  Transmission Date: 20181010
  Serious: Yes (Hospitalization, Other)
  Sender: FDA-Public Use
  Company Number: JP-PFIZER INC-2018370599

PATIENT
  Age: 80 Year
  Sex: Female

DRUGS (8)
  1. FURSULTIAMINE [FURSULTIAMINE HYDROCHLORIDE] [Concomitant]
  2. ASPARA?CA [Concomitant]
     Active Substance: CALCIUM ASPARTATE
  3. MOSAPRIDE CITRATE [Concomitant]
     Active Substance: MOSAPRIDE CITRATE
  4. HALCION [Suspect]
     Active Substance: TRIAZOLAM
     Dosage: 0.125 MG, DAILY
     Route: 048
  5. FLUVASTATIN [Concomitant]
     Active Substance: FLUVASTATIN SODIUM
  6. ALFACALCIDOL [Concomitant]
     Active Substance: ALFACALCIDOL
  7. AMLODIPIN [AMLODIPINE BESILATE] [Concomitant]
  8. TRIAZOLAM. [Suspect]
     Active Substance: TRIAZOLAM
     Dosage: UNK

REACTIONS (3)
  - Abdominal pain [Not Recovered/Not Resolved]
  - Gastric perforation [Unknown]
  - Large intestine polyp [Unknown]
